FAERS Safety Report 13267011 (Version 1)
Quarter: 2017Q1

REPORT INFORMATION
  Report Type: Spontaneous
  Country: US (occurrence: US)
  Receive Date: 20170223
  Receipt Date: 20170223
  Transmission Date: 20170428
  Serious: No
  Sender: FDA-Public Use
  Company Number: None

PATIENT
  Age: 59 Year
  Sex: Female

DRUGS (6)
  1. PROGRAF [Concomitant]
     Active Substance: TACROLIMUS\TACROLIMUS ANHYDROUS
  2. URSODIOL. [Concomitant]
     Active Substance: URSODIOL
  3. MYCOPHENOLAT [Concomitant]
     Active Substance: MYCOPHENOLATE MOFETIL
  4. PREDNISONE. [Concomitant]
     Active Substance: PREDNISONE
  5. PEPCID [Concomitant]
     Active Substance: FAMOTIDINE
  6. OCALIVA [Suspect]
     Active Substance: OBETICHOLIC ACID
     Indication: BILIARY CIRRHOSIS PRIMARY
     Route: 048
     Dates: start: 201611

REACTIONS (2)
  - Alopecia [None]
  - Pruritus [None]

NARRATIVE: CASE EVENT DATE: 201702
